FAERS Safety Report 5120838-5 (Version None)
Quarter: 2006Q4

REPORT INFORMATION
  Report Type: 
  Country: None (occurrence: None)
  Receive Date: 20061003
  Receipt Date: 20061003
  Transmission Date: 20070319
  Serious: No
  Sender: FDA-Public Use
  Company Number: None

PATIENT
  Sex: Male

DRUGS (5)
  1. CLOMIPRAMINE HCL [Suspect]
     Indication: OBSESSIVE-COMPULSIVE DISORDER
     Dosage: 50 MG BID  ORAL
     Route: 048
     Dates: start: 20060907
  2. CLOMIPRAMINE HCL [Suspect]
     Indication: PANIC ATTACK
     Dosage: 50 MG BID  ORAL
     Route: 048
     Dates: start: 20060907
  3. XANAX [Concomitant]
  4. WELLBUTRIN SR [Concomitant]
  5. RITALIN [Concomitant]

REACTIONS (3)
  - ABDOMINAL PAIN [None]
  - HYPERHIDROSIS [None]
  - INSOMNIA [None]
